FAERS Safety Report 6286699-6 (Version None)
Quarter: 2009Q3

REPORT INFORMATION
  Report Type: 
  Country: None (occurrence: None)
  Receive Date: 20090728
  Receipt Date: 20090717
  Transmission Date: 20100115
  Serious: Yes (Death, Hospitalization, Other)
  Sender: FDA-Public Use
  Company Number: JP-BAXTER-2009BH011668

PATIENT
  Age: 23 Year
  Sex: Male

DRUGS (18)
  1. ENDOXAN BAXTER [Suspect]
     Indication: LANGERHANS' CELL GRANULOMATOSIS
     Route: 065
     Dates: start: 19910101
  2. ETOPOSIDE [Suspect]
     Indication: LANGERHANS' CELL GRANULOMATOSIS
     Route: 065
     Dates: start: 19910101
  3. ETOPOSIDE [Suspect]
     Route: 065
  4. PREDNISOLONE [Suspect]
     Indication: LANGERHANS' CELL GRANULOMATOSIS
     Route: 065
     Dates: start: 19910101
  5. VINDESINE SULFATE [Suspect]
     Indication: LANGERHANS' CELL GRANULOMATOSIS
     Route: 065
     Dates: start: 19910101
  6. PINORUBIN [Suspect]
     Indication: LANGERHANS' CELL GRANULOMATOSIS
     Route: 065
  7. METHOTREXATE [Suspect]
     Indication: LANGERHANS' CELL GRANULOMATOSIS
     Route: 065
  8. INTERFERON ALFA [Suspect]
     Indication: LANGERHANS' CELL GRANULOMATOSIS
     Route: 065
  9. MITOXANTRONE GENERIC [Suspect]
     Indication: LANGERHANS' CELL GRANULOMATOSIS
     Route: 065
  10. CARBOPLATIN [Suspect]
     Indication: LANGERHANS' CELL GRANULOMATOSIS
     Route: 065
  11. METHYLPREDNISOLONE [Suspect]
     Indication: LANGERHANS' CELL GRANULOMATOSIS
     Route: 065
  12. DEXAMETHASONE [Suspect]
     Indication: LANGERHANS' CELL GRANULOMATOSIS
     Route: 065
  13. CYCLOSPORINE [Suspect]
     Indication: LANGERHANS' CELL GRANULOMATOSIS
     Route: 065
  14. HYDROXYCARBAMIDE [Suspect]
     Indication: LANGERHANS' CELL GRANULOMATOSIS
     Route: 065
  15. VINBLASTINE SULFATE [Suspect]
     Indication: LANGERHANS' CELL GRANULOMATOSIS
     Route: 065
  16. SOBUZOXANE [Suspect]
     Indication: LANGERHANS' CELL GRANULOMATOSIS
     Route: 065
  17. RADIOTHERAPY [Suspect]
     Indication: LUNG DISORDER
     Route: 065
  18. RADIOTHERAPY [Suspect]
     Indication: OSTEOLYSIS
     Route: 065

REACTIONS (6)
  - DISEASE PROGRESSION [None]
  - DRUG INEFFECTIVE [None]
  - MALIGNANT FIBROUS HISTIOCYTOMA [None]
  - MUCORMYCOSIS [None]
  - NEUTROPENIA [None]
  - PNEUMONIA [None]
